FAERS Safety Report 5776510-1 (Version None)
Quarter: 2008Q2

REPORT INFORMATION
  Report Type: 
  Country: None (occurrence: None)
  Receive Date: 20080616
  Receipt Date: 20080306
  Transmission Date: 20081010
  Serious: Yes (Other)
  Sender: FDA-Public Use
  Company Number: 8030789

PATIENT
  Age: 29 Year
  Sex: Female

DRUGS (6)
  1. NIFEDIPINE [Suspect]
     Indication: PREMATURE LABOUR
  2. CORTICOSTEROIDS [Suspect]
     Indication: PREMATURE LABOUR
  3. CYCLIZINE [Suspect]
     Indication: VOMITING
  4. INTRAVENOUS FLUIDS [Suspect]
     Indication: VOMITING
     Dosage: IV
     Route: 042
  5. MIFERISTONE [Suspect]
     Indication: INDUCED LABOUR
  6. MISOPROSTOL [Suspect]
     Indication: INDUCED LABOUR

REACTIONS (11)
  - ALANINE AMINOTRANSFERASE INCREASED [None]
  - BLOOD ALKALINE PHOSPHATASE INCREASED [None]
  - HEPATIC FAILURE [None]
  - HEPATIC STEATOSIS [None]
  - INTRA-UTERINE DEATH [None]
  - MATERNAL DRUGS AFFECTING FOETUS [None]
  - PREMATURE LABOUR [None]
  - PROTEIN URINE PRESENT [None]
  - TACHYCARDIA [None]
  - TWIN PREGNANCY [None]
  - WHITE BLOOD CELL COUNT INCREASED [None]
